FAERS Safety Report 8870912 (Version 4)
Quarter: 2013Q1

REPORT INFORMATION
  Report Type: Spontaneous
  Country: JP (occurrence: JP)
  Receive Date: 20121029
  Receipt Date: 20130125
  Transmission Date: 20140127
  Serious: Yes (Life-Threatening, Hospitalization, Disabling, Other)
  Sender: FDA-Public Use
  Company Number: PHHY2012JP096418

PATIENT
  Age: 68 Year
  Sex: Male
  Weight: 72 kg

DRUGS (17)
  1. ZOMETA [Suspect]
     Indication: METASTASES TO BONE
     Dosage: 4 MG, (PER ADMINISTRATION)
     Dates: start: 20080702, end: 20120815
  2. DOCETAXEL [Concomitant]
     Indication: PROSTATE CANCER
     Route: 042
     Dates: start: 2006
  3. HORMONES NOS [Concomitant]
     Dates: start: 2006
  4. STEROIDS NOS [Concomitant]
     Dates: start: 2006
  5. VOLTAREN [Concomitant]
  6. OXYCONTIN [Concomitant]
     Indication: CANCER PAIN
     Dosage: 20 MG, UNK
     Route: 048
     Dates: start: 20090324, end: 20120928
  7. GASTER D [Concomitant]
     Indication: GASTRIC ULCER
     Dosage: 20 MG, UNK
     Route: 048
     Dates: start: 20080930
  8. URIEF [Concomitant]
     Indication: BENIGN PROSTATIC HYPERPLASIA
     Dosage: 8 MG, UNK
     Route: 048
     Dates: start: 20070706
  9. PRIMPERAN [Concomitant]
     Indication: VOMITING
     Dosage: 15 MG, UNK
     Route: 048
     Dates: start: 20090611, end: 20120928
  10. ESTRACYT [Concomitant]
     Indication: PROSTATE CANCER
     Dosage: 626.8 MG, UNK
     Route: 048
     Dates: start: 20070817, end: 20120929
  11. MOBIC [Concomitant]
     Indication: CANCER PAIN
     Dosage: 10 MG, UNK
     Route: 048
     Dates: start: 20090708
  12. ALOSENN [Concomitant]
  13. YAKUBAN [Concomitant]
  14. DECADRON [Concomitant]
     Indication: PROSTATE CANCER
     Dosage: 0.5 MG, UNK
     Route: 048
     Dates: start: 20080930
  15. ONETAXOTERE [Concomitant]
  16. KYTRIL [Concomitant]
  17. DEXART [Concomitant]

REACTIONS (28)
  - Osteonecrosis of jaw [Unknown]
  - Cellulitis [Recovered/Resolved with Sequelae]
  - Osteomyelitis [Recovered/Resolved with Sequelae]
  - Neoplasm [Unknown]
  - Soft tissue infection [Unknown]
  - Pharyngeal abscess [Unknown]
  - Pain in jaw [Recovering/Resolving]
  - Mediastinitis [Unknown]
  - Nausea [Unknown]
  - Trismus [Unknown]
  - Oedema mouth [Unknown]
  - Hypophagia [Unknown]
  - Oral mucosal erythema [Unknown]
  - Gingival swelling [Unknown]
  - Lymph node pain [Unknown]
  - Purulent discharge [Unknown]
  - Aphagia [Unknown]
  - Dysphagia [Not Recovered/Not Resolved]
  - Obstructive airways disorder [Unknown]
  - Muscle abscess [Unknown]
  - Condition aggravated [Unknown]
  - Sepsis [Unknown]
  - Septic shock [Unknown]
  - Gastric ulcer [Unknown]
  - Stomatitis [Unknown]
  - White blood cell count increased [Unknown]
  - C-reactive protein increased [Unknown]
  - Vomiting [Unknown]
